FAERS Safety Report 4390885-X (Version None)
Quarter: 2004Q2

REPORT INFORMATION
  Report Type: 
  Country: None (occurrence: None)
  Receive Date: 20040630
  Receipt Date: 20040615
  Transmission Date: 20050107
  Serious: Yes (Hospitalization)
  Sender: FDA-Public Use
  Company Number: 198403

PATIENT
  Age: 56 Year
  Sex: Female

DRUGS (6)
  1. AVONEX [Suspect]
     Indication: MULTIPLE SCLEROSIS
     Dosage: 30 MCG QW IM
     Route: 030
     Dates: start: 20010829, end: 20040201
  2. AVONEX [Suspect]
     Indication: MULTIPLE SCLEROSIS
     Dosage: 30 MCG QW IM
     Route: 030
     Dates: start: 20040209
  3. ASPIRIN [Concomitant]
  4. BACLOFEN [Concomitant]
  5. AMARYL [Concomitant]
  6. GLUCOPHAGE [Concomitant]

REACTIONS (2)
  - DECUBITUS ULCER [None]
  - PARAPLEGIA [None]
